FAERS Safety Report 7636323 (Version 3)
Quarter: 2013Q2

REPORT INFORMATION
  Report Type: Report from Study
  Country: IN (occurrence: IN)
  Receive Date: 20101021
  Receipt Date: 20130611
  Transmission Date: 20140414
  Serious: Yes (Hospitalization)
  Sender: FDA-Public Use
  Company Number: IN-ROCHE-734115

PATIENT
  Age: 55 Year
  Sex: Male

DRUGS (5)
  1. PEG-INTERFERON ALFA 2A [Suspect]
     Indication: HEPATITIS C
     Route: 058
     Dates: start: 20100830, end: 20101004
  2. RIBAVIRIN [Suspect]
     Indication: HEPATITIS C
     Route: 048
     Dates: start: 20100830, end: 20101007
  3. VANCOMYCIN [Concomitant]
     Indication: INFECTION
     Route: 042
  4. PANTOPRAZOLE [Concomitant]
     Indication: GASTRITIS
     Route: 048
  5. BECOZYME C FORTE [Concomitant]
     Indication: VITAMIN SUPPLEMENTATION
     Route: 048

REACTIONS (2)
  - Femur fracture [Unknown]
  - Femur fracture [Unknown]
